FAERS Safety Report 15771021 (Version 1)
Quarter: 2018Q4

REPORT INFORMATION
  Report Type: Spontaneous
  Country: US (occurrence: US)
  Receive Date: 20181228
  Receipt Date: 20181228
  Transmission Date: 20190205
  Serious: Yes (Hospitalization, Disabling)
  Sender: FDA-Public Use
  Company Number: None

PATIENT
  Sex: Male

DRUGS (1)
  1. INJECTAFER [Suspect]
     Active Substance: FERRIC CARBOXYMALTOSE
     Indication: IRON DEFICIENCY ANAEMIA
     Dosage: ?          QUANTITY:2 INJECTION(S);OTHER FREQUENCY:1 WEEK APART;?
     Route: 042

REACTIONS (6)
  - Hypophosphataemia [None]
  - Palpitations [None]
  - Hypertension [None]
  - Electrocardiogram abnormal [None]
  - Asthenia [None]
  - Heart rate [None]

NARRATIVE: CASE EVENT DATE: 20181226
